FAERS Safety Report 9602317 (Version 1)
Quarter: 2013Q4

REPORT INFORMATION
  Report Type: Spontaneous
  Country: US (occurrence: US)
  Receive Date: 20131007
  Receipt Date: 20131007
  Transmission Date: 20140711
  Serious: No
  Sender: FDA-Public Use
  Company Number: US-GLAXOSMITHKLINE-A1028460A

PATIENT
  Age: 48 Year
  Sex: Female

DRUGS (4)
  1. BENLYSTA [Suspect]
     Indication: SYSTEMIC LUPUS ERYTHEMATOSUS
     Route: 042
  2. ARAVA [Concomitant]
  3. PREDNISONE [Concomitant]
  4. VISTARIL [Concomitant]

REACTIONS (3)
  - Pruritus [Unknown]
  - Urticaria [Unknown]
  - Cough [Unknown]
